FAERS Safety Report 20740135 (Version 1)
Quarter: 2022Q2

REPORT INFORMATION
  Report Type: Spontaneous
  Country: IT (occurrence: IT)
  Receive Date: 20220422
  Receipt Date: 20220422
  Transmission Date: 20220721
  Serious: Yes (Other)
  Sender: FDA-Public Use
  Company Number: None

PATIENT
  Age: 57 Year
  Sex: Male
  Weight: 133 kg

DRUGS (3)
  1. OXALIPLATIN [Suspect]
     Active Substance: OXALIPLATIN
     Indication: Colon cancer
     Dosage: 208 MILLIGRAM, CYCLE
     Route: 042
     Dates: start: 20220210, end: 20220210
  2. RIXIL [Concomitant]
     Indication: Hypertension
     Dosage: UNK
  3. XELODA [Concomitant]
     Active Substance: CAPECITABINE
     Indication: Colon cancer
     Dosage: 4000 MILLIGRAM
     Route: 048

REACTIONS (6)
  - Laryngeal discomfort [Recovered/Resolved]
  - Hyperhidrosis [Recovered/Resolved]
  - Confusional state [Recovered/Resolved]
  - Flushing [Recovered/Resolved]
  - Erythema [Recovered/Resolved]
  - Dyspnoea [Recovered/Resolved]

NARRATIVE: CASE EVENT DATE: 20220210
